FAERS Safety Report 20599655 (Version 1)
Quarter: 2022Q1

REPORT INFORMATION
  Report Type: Spontaneous
  Country: FR (occurrence: FR)
  Receive Date: 20220316
  Receipt Date: 20220316
  Transmission Date: 20220423
  Serious: Yes (Other)
  Sender: FDA-Public Use
  Company Number: FR-Teikoku Pharma USA-TPU2022-00146

PATIENT
  Sex: Female

DRUGS (5)
  1. LIDOCAINE [Suspect]
     Active Substance: LIDOCAINE
     Indication: Sciatica
     Route: 061
     Dates: end: 20220130
  2. LIDOCAINE [Suspect]
     Active Substance: LIDOCAINE
     Indication: Arthralgia
  3. XANAX [Concomitant]
     Active Substance: ALPRAZOLAM
  4. BILASTINE [Concomitant]
     Active Substance: BILASTINE
  5. UNSPECIFIED INGREDIENT [Concomitant]
     Active Substance: UNSPECIFIED INGREDIENT

REACTIONS (8)
  - Suicidal ideation [Unknown]
  - Application site pain [Recovered/Resolved]
  - Application site erythema [Recovered/Resolved]
  - Off label use [Unknown]
  - Skin irritation [Unknown]
  - Thinking abnormal [Unknown]
  - Product use issue [Unknown]
  - Drug ineffective for unapproved indication [Unknown]

NARRATIVE: CASE EVENT DATE: 20220208
